FAERS Safety Report 10337671 (Version 1)
Quarter: 2014Q3

REPORT INFORMATION
  Report Type: Spontaneous
  Country: US (occurrence: US)
  Receive Date: 20140724
  Receipt Date: 20140724
  Transmission Date: 20150326
  Serious: Yes (Hospitalization)
  Sender: FDA-Public Use
  Company Number: US-BIOGENIDEC-2014BI072719

PATIENT
  Age: 56 Year
  Sex: Female
  Weight: 136 kg

DRUGS (2)
  1. TYSABRI [Suspect]
     Active Substance: NATALIZUMAB
     Indication: PRODUCT USED FOR UNKNOWN INDICATION
     Route: 042
  2. AMPYRA [Concomitant]
     Active Substance: DALFAMPRIDINE
     Indication: MULTIPLE SCLEROSIS
     Route: 048
     Dates: start: 20100514, end: 20100516

REACTIONS (5)
  - Gait disturbance [Unknown]
  - Abdominal pain upper [Unknown]
  - Hypoaesthesia [Unknown]
  - Multiple sclerosis relapse [Unknown]
  - Dysgraphia [Recovered/Resolved]
